FAERS Safety Report 11965360 (Version 1)
Quarter: 2016Q1

REPORT INFORMATION
  Report Type: Spontaneous
  Country: US (occurrence: US)
  Receive Date: 20160127
  Receipt Date: 20160127
  Transmission Date: 20160526
  Serious: No
  Sender: FDA-Public Use
  Company Number: US-TEVA-617531USA

PATIENT
  Sex: Male

DRUGS (1)
  1. DEXMETHYLPHENIDATE [Suspect]
     Active Substance: DEXMETHYLPHENIDATE HYDROCHLORIDE
     Dates: start: 20151024

REACTIONS (3)
  - Nail picking [Unknown]
  - Product substitution issue [Unknown]
  - Adverse event [Unknown]

NARRATIVE: CASE EVENT DATE: 20151024
